FAERS Safety Report 9813076 (Version 1)
Quarter: 2014Q1

REPORT INFORMATION
  Report Type: Report from Study
  Country: US (occurrence: US)
  Receive Date: 20140113
  Receipt Date: 20140113
  Transmission Date: 20141002
  Serious: Yes (Hospitalization)
  Sender: FDA-Public Use
  Company Number: US-MERCK-1401USA003135

PATIENT
  Age: 59 Year
  Sex: Female
  Weight: 55.2 kg

DRUGS (4)
  1. VORINOSTAT [Suspect]
     Indication: DIFFUSE LARGE B-CELL LYMPHOMA
     Dosage: 200 MG, BID CYCLE 1 ON DAYS 1-5 AND 8-12
     Route: 048
     Dates: start: 20130814
  2. VORINOSTAT [Suspect]
     Dosage: 200 MG, BID CYCLE 2 DAYS 1-5 AND 8-12
     Route: 048
     Dates: start: 20130904, end: 20130915
  3. ALISERTIB [Suspect]
     Indication: DIFFUSE LARGE B-CELL LYMPHOMA
     Dosage: ON DAYS 1-3 AND 8-1030 MG, BID
     Route: 048
     Dates: start: 20130814
  4. ALISERTIB [Suspect]
     Dosage: 30 MG, BID CYCLE 2 ON  DAYS 1-3 AND 8-10
     Route: 048
     Dates: start: 20130904, end: 20130915

REACTIONS (1)
  - Cough [Not Recovered/Not Resolved]
